FAERS Safety Report 23107854 (Version 1)
Quarter: 2023Q4

REPORT INFORMATION
  Report Type: Spontaneous
  Country: AU (occurrence: None)
  Receive Date: 20231026
  Receipt Date: 20231026
  Transmission Date: 20240110
  Serious: Yes (Hospitalization)
  Sender: FDA-Public Use
  Company Number: AU-ROCHE-3401858

PATIENT
  Age: 62 Year
  Sex: Male

DRUGS (13)
  1. ACTEMRA [Suspect]
     Active Substance: TOCILIZUMAB
     Indication: Product used for unknown indication
     Dosage: STRENGTH:162 MG/0.9 ML
     Route: 058
  2. PREDNISOLONE [Concomitant]
     Active Substance: PREDNISOLONE
  3. PANTOPRAZOLE [Concomitant]
     Active Substance: PANTOPRAZOLE
  4. COLCHICINE [Concomitant]
     Active Substance: COLCHICINE
  5. HYDROXYCHLOROQUINE [Concomitant]
     Active Substance: HYDROXYCHLOROQUINE
  6. ASPIRIN [Concomitant]
     Active Substance: ASPIRIN
  7. ATORVASTATIN [Concomitant]
     Active Substance: ATORVASTATIN
  8. TELMISARTAN [Concomitant]
     Active Substance: TELMISARTAN
  9. METHOTREXATE [Concomitant]
     Active Substance: METHOTREXATE
  10. FOLIC ACID [Concomitant]
     Active Substance: FOLIC ACID
  11. ACETAMINOPHEN [Concomitant]
     Active Substance: ACETAMINOPHEN
  12. FISIOCREM [Concomitant]
  13. BENZYDAMINE [Concomitant]
     Active Substance: BENZYDAMINE

REACTIONS (9)
  - Inflammation [Unknown]
  - Product quality issue [Unknown]
  - Ill-defined disorder [Unknown]
  - Pericarditis [Unknown]
  - Chest pain [Unknown]
  - Pain [Unknown]
  - Condition aggravated [Unknown]
  - Hypokinesia [Unknown]
  - Asthenia [Unknown]

NARRATIVE: CASE EVENT DATE: 20230912
